FAERS Safety Report 6379620-3 (Version None)
Quarter: 2009Q3

REPORT INFORMATION
  Report Type: 
  Country: None (occurrence: None)
  Receive Date: 20090922
  Receipt Date: 20090922
  Transmission Date: 20100115
  Serious: Yes (Life-Threatening, Other)
  Sender: FDA-Public Use
  Company Number: None

PATIENT
  Age: 43 Year
  Sex: Male
  Weight: 102.0593 kg

DRUGS (2)
  1. ZICAM INTENSE SINUS RELIEF NASAL GEL [Suspect]
     Indication: SINUS HEADACHE
     Dosage: 1 DOSE
     Dates: start: 20090905
  2. UNIDENTIFIED PAIN AND JOINT MEDICATION [Concomitant]

REACTIONS (5)
  - CHEST PAIN [None]
  - DYSPNOEA [None]
  - LIP SWELLING [None]
  - RASH PRURITIC [None]
  - SWOLLEN TONGUE [None]
